FAERS Safety Report 14392417 (Version 1)
Quarter: 2018Q1

REPORT INFORMATION
  Report Type: Spontaneous
  Country: US (occurrence: None)
  Receive Date: 20180108
  Receipt Date: 20180108
  Transmission Date: 20180509
  Serious: Yes (Other)
  Sender: FDA-Public Use
  Company Number: 2017GNC00836

PATIENT
  Age: 31 Year
  Sex: Female
  Weight: 68 kg

DRUGS (5)
  1. HAIR, SKIN AND NAILS (DIETARY SUPPLEMENT) [Concomitant]
     Active Substance: DIETARY SUPPLEMENT
  2. ^GABA^ (^GABA^) [Concomitant]
  3. GNC BIO-REMEDY ARNICA RELIEF [Suspect]
     Active Substance: HOMEOPATHICS
     Indication: NUTRITIONAL SUPPLEMENTATION
     Dosage: 1 TABLETS, 6X/DAY, ORAL
     Route: 048
     Dates: start: 20171011, end: 20171012
  4. UNSPECIFIED PROBIOTIC (DIETARY SUPPLEMENT) [Concomitant]
     Active Substance: DIETARY SUPPLEMENT
  5. L-THEANINE (DIETARY SUPPLEMENT) [Concomitant]
     Active Substance: DIETARY SUPPLEMENT

REACTIONS (1)
  - Facial paralysis [None]

NARRATIVE: CASE EVENT DATE: 20171011
